FAERS Safety Report 6402680-8 (Version None)
Quarter: 2009Q4

REPORT INFORMATION
  Report Type: 
  Country: None (occurrence: None)
  Receive Date: 20091009
  Receipt Date: 20090930
  Transmission Date: 20100525
  Serious: Yes (Death)
  Sender: FDA-Public Use
  Company Number: ADR34222009

PATIENT
  Age: 76 Year
  Sex: Male

DRUGS (9)
  1. CIPROFLOXACIN [Suspect]
     Dosage: 500 MG
  2. CARBOPLATIN [Concomitant]
  3. CLARITHYROMYCIN [Concomitant]
  4. ETOPOSIDE [Concomitant]
  5. BISOPROLOL [Concomitant]
  6. AMOXICILLIN AND CLAVULANATE POTASSIUM [Concomitant]
  7. DEXAMETHASONE [Concomitant]
  8. DOMPERIDONE [Concomitant]
  9. OMEPRAZOLE [Concomitant]

REACTIONS (2)
  - CLOSTRIDIAL INFECTION [None]
  - NEUTROPENIC SEPSIS [None]
